FAERS Safety Report 8340379-1 (Version None)
Quarter: 2012Q2

REPORT INFORMATION
  Report Type: 
  Country: None (occurrence: None)
  Receive Date: 20120507
  Receipt Date: 20120502
  Transmission Date: 20120825
  Serious: Yes (Hospitalization, Other)
  Sender: FDA-Public Use
  Company Number: US-PFIZER INC-2012098472

PATIENT
  Sex: Female
  Weight: 88.435 kg

DRUGS (4)
  1. COMPAZINE [Concomitant]
     Indication: NAUSEA
     Dosage: 10 MG, AS NEEDED
  2. XALKORI [Suspect]
     Indication: LUNG NEOPLASM MALIGNANT
     Dosage: 250 MG, 2X/DAY
     Route: 048
     Dates: start: 20120301, end: 20120403
  3. ALBUTEROL [Concomitant]
     Dosage: UNK
     Route: 055
  4. ANASTROZOLE [Concomitant]
     Dosage: UNK

REACTIONS (12)
  - PNEUMONIA [None]
  - OESOPHAGEAL DISORDER [None]
  - ABDOMINAL DISCOMFORT [None]
  - DIARRHOEA [None]
  - OESOPHAGEAL PAIN [None]
  - CONSTIPATION [None]
  - DYSPHAGIA [None]
  - VOMITING [None]
  - EROSIVE OESOPHAGITIS [None]
  - PAIN [None]
  - PULMONARY THROMBOSIS [None]
  - STOMATITIS [None]
